FAERS Safety Report 8501018-X (Version None)
Quarter: 2012Q2

REPORT INFORMATION
  Report Type: 
  Country: None (occurrence: None)
  Receive Date: 20120405
  Receipt Date: 20100212
  Transmission Date: 20120825
  Serious: Yes (Other)
  Sender: FDA-Public Use
  Company Number: PHEH2010US02510

PATIENT
  Age: 74 Year
  Sex: Female
  Weight: 52.6 kg

DRUGS (7)
  1. RECLAST [Suspect]
     Indication: OSTEOPOROSIS
     Dosage: 5MG YEARLY, INTRAVENOUS
     Route: 042
     Dates: start: 20091218
  2. MULTIVITAMINS 9ASCORBIC ACID, ERGOCALCIFEROL, FOLIC ACID, NICOTINAMIDE [Concomitant]
  3. LIPITOR [Concomitant]
  4. LIDODERM [Concomitant]
  5. ASPIRIN [Concomitant]
  6. METAMUCIL (ISPAGHULA, PLANTAGO OVATA) [Concomitant]
  7. RANITIDINE HYDROCHLORIDE [Concomitant]

REACTIONS (6)
  - INSOMNIA [None]
  - BLOOD MAGNESIUM INCREASED [None]
  - GAIT DISTURBANCE [None]
  - DECREASED APPETITE [None]
  - PAIN [None]
  - RED BLOOD CELL SEDIMENTATION RATE INCREASED [None]
